FAERS Safety Report 10853243 (Version 1)
Quarter: 2015Q1

REPORT INFORMATION
  Report Type: Spontaneous
  Country: US (occurrence: None)
  Receive Date: 20150218
  Receipt Date: 20150218
  Transmission Date: 20150721
  Serious: Yes (Death)
  Sender: FDA-Public Use
  Company Number: None

PATIENT
  Age: 29 Year
  Sex: Female
  Weight: 104.8 kg

DRUGS (4)
  1. FORTAZ [Suspect]
     Active Substance: CEFTAZIDIME SODIUM
     Indication: CHILLS
     Dosage: 1 GM ONCE IVP
     Dates: start: 20141215, end: 20141215
  2. EPOGEN [Concomitant]
     Active Substance: ERYTHROPOIETIN
  3. FORTAZ [Suspect]
     Active Substance: CEFTAZIDIME SODIUM
     Indication: PYREXIA
     Dosage: 1 GM ONCE IVP
     Dates: start: 20141215, end: 20141215
  4. HEPARIN [Concomitant]
     Active Substance: HEPARIN SODIUM

REACTIONS (6)
  - Foaming at mouth [None]
  - Cardiac arrest [None]
  - Chills [None]
  - Body temperature increased [None]
  - Respiration abnormal [None]
  - Throat irritation [None]

NARRATIVE: CASE EVENT DATE: 20141215
